FAERS Safety Report 8521955-X (Version None)
Quarter: 2012Q3

REPORT INFORMATION
  Report Type: 
  Country: None (occurrence: None)
  Receive Date: 20120719
  Receipt Date: 20120618
  Transmission Date: 20120928
  Serious: Yes (Other)
  Sender: FDA-Public Use
  Company Number: US-BRISTOL-MYERS SQUIBB COMPANY-16692493

PATIENT
  Age: 60 Year
  Sex: Male

DRUGS (1)
  1. YERVOY [Suspect]
     Dosage: 3 MG/KG
     Dates: start: 20110517, end: 20110720

REACTIONS (2)
  - THROMBOCYTOPENIA [None]
  - NEOPLASM MALIGNANT [None]
